FAERS Safety Report 16365245 (Version 2)
Quarter: 2019Q3

REPORT INFORMATION
  Report Type: Report from Study
  Country: None (occurrence: UY)
  Receive Date: 20190529
  Receipt Date: 20190729
  Transmission Date: 20191004
  Serious: Yes (Death, Life-Threatening, Hospitalization)
  Sender: FDA-Public Use
  Company Number: UY-ABBVIE-19K-168-2799700-00

PATIENT
  Sex: Female

DRUGS (2)
  1. HUMIRA [Suspect]
     Active Substance: ADALIMUMAB
     Indication: RHEUMATOID ARTHRITIS
     Route: 058
  2. HUMIRA [Suspect]
     Active Substance: ADALIMUMAB
     Indication: RHEUMATOID ARTHRITIS
     Route: 058
     Dates: start: 20130805

REACTIONS (3)
  - Coma [Not Recovered/Not Resolved]
  - Immunodeficiency [Unknown]
  - Tuberculosis of central nervous system [Fatal]

NARRATIVE: CASE EVENT DATE: 2019
